FAERS Safety Report 7685403-4 (Version None)
Quarter: 2011Q3

REPORT INFORMATION
  Report Type: 
  Country: None (occurrence: None)
  Receive Date: 20110816
  Receipt Date: 20101015
  Transmission Date: 20111222
  Serious: No
  Sender: FDA-Public Use
  Company Number: US-BAYER-201038449NA

PATIENT
  Age: 27 Year
  Sex: Female

DRUGS (1)
  1. MIRENA [Suspect]
     Dosage: 20 ?G/D, CONT
     Route: 015
     Dates: start: 20100920, end: 20101014

REACTIONS (3)
  - ABDOMINAL PAIN LOWER [None]
  - DEVICE DISLOCATION [None]
  - ABDOMINAL PAIN [None]
